FAERS Safety Report 7095725-6 (Version None)
Quarter: 2010Q4

REPORT INFORMATION
  Report Type: 
  Country: None (occurrence: None)
  Receive Date: 20101111
  Receipt Date: 20101102
  Transmission Date: 20110411
  Serious: Yes (Other)
  Sender: FDA-Public Use
  Company Number: US-NOVOPROD-317542

PATIENT
  Sex: Female

DRUGS (7)
  1. NOVOLOG MIX 70/30 [Suspect]
     Indication: TYPE 2 DIABETES MELLITUS
     Dosage: UNK
     Route: 058
     Dates: start: 20100401
  2. KEPPRA [Concomitant]
     Indication: CONVULSION
     Dosage: 250 MG, QD
     Route: 048
  3. KEPPRA [Concomitant]
     Dosage: 500 MG, QD
     Route: 048
  4. CLONAZEPAM [Concomitant]
     Indication: CONVULSION
     Dosage: UNK
  5. RAMIPRIL [Concomitant]
     Indication: HYPERTENSION
     Dosage: UNK
  6. SIMVASTATIN [Concomitant]
     Indication: BLOOD CHOLESTEROL INCREASED
     Dosage: UNK
  7. LEXAPRO [Concomitant]

REACTIONS (2)
  - ABDOMINAL DISCOMFORT [None]
  - CONVULSION [None]
